FAERS Safety Report 4289783-1 (Version None)
Quarter: 2004Q1

REPORT INFORMATION
  Report Type: 
  Country: None (occurrence: None)
  Receive Date: 20040210
  Receipt Date: 20040127
  Transmission Date: 20041129
  Serious: Yes (Hospitalization)
  Sender: FDA-Public Use
  Company Number: FR-GLAXOSMITHKLINE-B0321149A

PATIENT
  Age: 80 Year
  Sex: Female

DRUGS (5)
  1. REQUIP [Suspect]
     Indication: PARKINSON'S DISEASE
     Dosage: .25MG TWICE PER DAY
     Route: 048
  2. SINEMET [Concomitant]
     Indication: PARKINSON'S DISEASE
     Dosage: 900MG PER DAY
     Route: 048
  3. TRIATEC [Concomitant]
     Indication: ATRIAL FLUTTER
     Route: 048
     Dates: start: 20030715
  4. PREVISCAN [Concomitant]
     Indication: ATRIAL FLUTTER
     Route: 048
     Dates: start: 20030715
  5. CORDARONE [Concomitant]
     Indication: ATRIAL FLUTTER
     Route: 048
     Dates: start: 20030715

REACTIONS (6)
  - DIZZINESS [None]
  - FALL [None]
  - HAEMATOMA [None]
  - HEAD INJURY [None]
  - VERTIGO [None]
  - WOUND [None]
